FAERS Safety Report 8739804 (Version 2)
Quarter: 2012Q4

REPORT INFORMATION
  Report Type: 
  Country: US (occurrence: US)
  Receive Date: 20120823
  Receipt Date: 20121101
  Transmission Date: 20130627
  Serious: Yes (Hospitalization, Other)
  Sender: FDA-Public Use
  Company Number: US-ROCHE-765378

PATIENT
  Age: 14 Year
  Sex: Male
  Weight: 54.48 kg

DRUGS (2)
  1. ACCUTANE [Suspect]
     Indication: ACNE
     Route: 065
     Dates: start: 19940914, end: 19950208
  2. ACCUTANE [Suspect]
     Route: 065
     Dates: start: 1999, end: 2000

REACTIONS (10)
  - Colitis ulcerative [Unknown]
  - Crohn^s disease [Unknown]
  - Inflammatory bowel disease [Unknown]
  - Intestinal obstruction [Unknown]
  - Emotional distress [Unknown]
  - Dry skin [Unknown]
  - Chapped lips [Unknown]
  - Mood altered [Unknown]
  - Epistaxis [Unknown]
  - Rash [Unknown]
